FAERS Safety Report 17692074 (Version 1)
Quarter: 2020Q2

REPORT INFORMATION
  Report Type: Spontaneous
  Country: CN (occurrence: CN)
  Receive Date: 20200422
  Receipt Date: 20200422
  Transmission Date: 20200714
  Serious: Yes (Other)
  Sender: FDA-Public Use
  Company Number: CN-BAXTER-2020BAX008557

PATIENT
  Age: 13 Year
  Sex: Male
  Weight: 47 kg

DRUGS (39)
  1. 0.9% SODIUM CHLORIDE INJECTION [Suspect]
     Active Substance: SODIUM CHLORIDE
     Dosage: DOSE RE-INTRODUCED, VINCRISTINE + 0.9% SODIUM CHLORIDE
     Route: 042
  2. 5% GLUCOSE  INJECTION [Suspect]
     Active Substance: DEXTROSE
     Dosage: DOSE RE-INTRODUCED, CYTARABINE + 5% GLUCOSE
     Route: 041
  3. VINCRISTINE [Suspect]
     Active Substance: VINCRISTINE
     Dosage: CHEMOTHERAPY FOURTH TIME, VINCRISTINE 2 MG + 0.9% SODIUM CHLORIDE 10 ML
     Route: 042
     Dates: start: 20200318, end: 20200318
  4. DEXAMETHASONE SODIUM PHOSPHATE. [Suspect]
     Active Substance: DEXAMETHASONE SODIUM PHOSPHATE
     Dosage: FOURTH TIME METHOTREXATE 12.5 MG + DEXAMETHASONE SODIUM PHOSPHATE 2.5 MG + 0.9% SODIUM CHLORIDE 3 ML
     Route: 037
     Dates: start: 20200310, end: 20200310
  5. ENDOXAN [Suspect]
     Active Substance: CYCLOPHOSPHAMIDE
     Dosage: DOSE RE-INTRODUCED, CYCLOPHOSPHAMIDE + 0.9% SODIUM CHLORIDE
     Route: 041
  6. 0.9% SODIUM CHLORIDE INJECTION [Suspect]
     Active Substance: SODIUM CHLORIDE
     Dosage: CHEMOTHERAPY FOURTH TIME, VINCRISTINE 2 MG + 0.9% SODIUM CHLORIDE 10 ML
     Route: 042
     Dates: start: 20200318, end: 20200318
  7. 0.9% SODIUM CHLORIDE INJECTION [Suspect]
     Active Substance: SODIUM CHLORIDE
     Dosage: CHEMOTHERAPY FOURTH TIME, CEDESSA 0.035 G + DEXAMETHASONE SODIUM PHOSPHATE 2.5 MG + 0.9% SODIUM CHLO
     Route: 037
     Dates: start: 20200310, end: 20200310
  8. METHOTREXATE. [Suspect]
     Active Substance: METHOTREXATE
     Dosage: FOURTH, METHOTREXATE 12.5 MG + DEXAMETHASONE SODIUM PHOSPHATE 2.5 MG + 0.9% SODIUM CHLORIDE 3 ML
     Route: 037
     Dates: start: 20200310, end: 20200310
  9. VINCRISTINE [Suspect]
     Active Substance: VINCRISTINE
     Indication: ACUTE LYMPHOCYTIC LEUKAEMIA
     Dosage: CHEMOTHERAPY FIRST TO THIRD TIME, VINCRISTINE + 0.9% SODIUM CHLORIDE
     Route: 042
  10. DEXAMETHASONE SODIUM PHOSPHATE. [Suspect]
     Active Substance: DEXAMETHASONE SODIUM PHOSPHATE
     Indication: ACUTE LYMPHOCYTIC LEUKAEMIA
     Dosage: CHEMOTHERAPY 1-3 TIME, METHOTREXATE + DEXAMETHASONE SODIUM PHOSPHATE + 0.9% SODIUM CHLORIDE
     Route: 037
  11. ENDOXAN [Suspect]
     Active Substance: CYCLOPHOSPHAMIDE
     Dosage: CHEMOTHERAPY FOURTH TIME, CYCLOPHOSPHAMIDE 1.39 G + 0.9% SODIUM CHLORIDE INJECTION 500ML
     Route: 041
     Dates: start: 20200310, end: 20200310
  12. 0.9% SODIUM CHLORIDE INJECTION [Suspect]
     Active Substance: SODIUM CHLORIDE
     Dosage: CHEMOTHERAPY FOURTH TIME, VINCRISTINE 2 MG + 0.9% SODIUM CHLORIDE 10 ML
     Route: 042
     Dates: start: 20200310, end: 20200310
  13. AIYANG (PEGASPARGASE) [Suspect]
     Active Substance: PEGASPARGASE
     Dosage: CHEMOTHERAPY FOURTH TIME
     Route: 030
     Dates: start: 20200310, end: 20200310
  14. METHOTREXATE. [Suspect]
     Active Substance: METHOTREXATE
     Indication: ACUTE LYMPHOCYTIC LEUKAEMIA
     Dosage: CHEMOTHERAPY 1-3 TIME, METHOTREXATE + DEXAMETHASONE SODIUM PHOSPHATE + 0.9% SODIUM CHLORIDE
     Route: 037
  15. DEXAMETHASONE SODIUM PHOSPHATE. [Suspect]
     Active Substance: DEXAMETHASONE SODIUM PHOSPHATE
     Dosage: CHEMOTHERAPY FIRST TO THIRD TIME, CEDESSA + DEXAMETHASONE SODIUM PHOSPHATE + 0.9% SODIUM CHLORIDE
     Route: 037
  16. ENDOXAN [Suspect]
     Active Substance: CYCLOPHOSPHAMIDE
     Indication: ACUTE LYMPHOCYTIC LEUKAEMIA
     Dosage: CHEMOTHERAPY FIRST TO THIRD TIME, CYCLOPHOSPHAMIDE + 0.9% SODIUM CHLORIDE
     Route: 041
  17. 0.9% SODIUM CHLORIDE INJECTION [Suspect]
     Active Substance: SODIUM CHLORIDE
     Dosage: DOSE RE-INTRODUCED, CEDESSA + DEXAMETHASONE SODIUM PHOSPHATE + 0.9% SODIUM CHLORIDE
     Route: 037
  18. CEDESSA (CYTARABINE) [Suspect]
     Active Substance: CYTARABINE
     Indication: ACUTE LYMPHOCYTIC LEUKAEMIA
     Dosage: CHEMOTHERAPY FIRST TO THIRD TIME, CEDESSA + DEXAMETHASONE SODIUM PHOSPHATE + 0.9% SODIUM CHLORIDE
     Route: 037
  19. 0.9% SODIUM CHLORIDE INJECTION [Suspect]
     Active Substance: SODIUM CHLORIDE
     Dosage: CHEMOTHERAPY FIRST TO THIRD TIME, VINCRISTINE + 0.9% SODIUM CHLORIDE
     Route: 042
  20. 5% GLUCOSE  INJECTION [Suspect]
     Active Substance: DEXTROSE
     Indication: MEDICATION DILUTION
     Dosage: CHEMOTHERAPY FIRST TO THIRD TIME, CYTARABINE + 5% GLUCOSE
     Route: 041
  21. 5% GLUCOSE  INJECTION [Suspect]
     Active Substance: DEXTROSE
     Dosage: CHEMOTHERAPY FOURTH TIME, CYTARABINE 0.06 G + 5% GLUCOSE 250 ML
     Route: 041
     Dates: start: 20200310, end: 20200317
  22. CYTARABINE. [Suspect]
     Active Substance: CYTARABINE
     Indication: ACUTE LYMPHOCYTIC LEUKAEMIA
     Dosage: CHEMOTHERAPY FIRST TO THIRD TIME, CYTARABINE + 5% GLUCOSE
     Route: 041
  23. VINCRISTINE [Suspect]
     Active Substance: VINCRISTINE
     Dosage: CHEMOTHERAPY FOURTH TIME, VINCRISTINE 2 MG + 0.9% SODIUM CHLORIDE 10 ML
     Route: 042
     Dates: start: 20200310, end: 20200310
  24. CEDESSA (CYTARABINE) [Suspect]
     Active Substance: CYTARABINE
     Dosage: FOURTH TIME, CEDESSA 0.035 G + DEXAMETHASONE SODIUM PHOSPHATE 2.5 MG + 0.9% SODIUM CHLORIDE 3 ML
     Route: 037
     Dates: start: 20200310, end: 20200310
  25. CEDESSA (CYTARABINE) [Suspect]
     Active Substance: CYTARABINE
     Dosage: DOSE RE-INTRODUCED, CEDESSA + DEXAMETHASONE SODIUM PHOSPHATE + 0.9% SODIUM CHLORIDE
     Route: 037
  26. 0.9% SODIUM CHLORIDE INJECTION [Suspect]
     Active Substance: SODIUM CHLORIDE
     Dosage: CHEMOTHERAPY FOURTH TIME, CYCLOPHOSPHAMIDE 1.39 G + 0.9% SODIUM CHLORIDE INJECTION 500 ML
     Route: 041
     Dates: start: 20200310, end: 20200310
  27. METHOTREXATE. [Suspect]
     Active Substance: METHOTREXATE
     Dosage: DOSE RE-INTRODUCED, METHOTREXATE + DEXAMETHASONE SODIUM PHOSPHATE + 0.9% SODIUM CHLORIDE
     Route: 037
  28. 0.9% SODIUM CHLORIDE INJECTION [Suspect]
     Active Substance: SODIUM CHLORIDE
     Indication: MEDICATION DILUTION
     Dosage: CHEMOTHERAPY FIRST TO THIRD TIME, CYCLOPHOSPHAMIDE + 0.9% SODIUM CHLORIDE
     Route: 041
  29. 0.9% SODIUM CHLORIDE INJECTION [Suspect]
     Active Substance: SODIUM CHLORIDE
     Dosage: CHEMOTHERAPY 1-3 TIME, METHOTREXATE + DEXAMETHASONE SODIUM PHOSPHATE + 0.9% SODIUM CHLORIDE
     Route: 037
  30. 0.9% SODIUM CHLORIDE INJECTION [Suspect]
     Active Substance: SODIUM CHLORIDE
     Dosage: DOSE RE-INTRODUCED, CYCLOPHOSPHAMIDE + 0.9% SODIUM CHLORIDE
     Route: 041
  31. AIYANG (PEGASPARGASE) [Suspect]
     Active Substance: PEGASPARGASE
     Dosage: DOSE RE-INTRODUCED
     Route: 030
  32. CYTARABINE. [Suspect]
     Active Substance: CYTARABINE
     Dosage: DOSE RE-INTRODUCED, CYTARABINE + 5% GLUCOSE
     Route: 041
  33. 0.9% SODIUM CHLORIDE INJECTION [Suspect]
     Active Substance: SODIUM CHLORIDE
     Dosage: DOSE RE-INTRODUCED, METHOTREXATE + DEXAMETHASONE SODIUM PHOSPHATE + 0.9% SODIUM CHLORIDE INJECTION
     Route: 037
  34. AIYANG (PEGASPARGASE) [Suspect]
     Active Substance: PEGASPARGASE
     Indication: ACUTE LYMPHOCYTIC LEUKAEMIA
     Dosage: CHEMOTHERAPY FIRST TO THIRD TIME
     Route: 030
  35. CYTARABINE. [Suspect]
     Active Substance: CYTARABINE
     Dosage: CHEMOTHERAPY FOURTH TIME, CYTARABINE 0.06 G + 5% GLUCOSE 250 ML
     Route: 041
     Dates: start: 20200310, end: 20200317
  36. VINCRISTINE [Suspect]
     Active Substance: VINCRISTINE
     Dosage: DOSE RE-INTRODUCED, VINCRISTINE + 0.9% SODIUM CHLORIDE
     Route: 042
  37. DEXAMETHASONE SODIUM PHOSPHATE. [Suspect]
     Active Substance: DEXAMETHASONE SODIUM PHOSPHATE
     Dosage: FOURTH TIME, CEDESSA 0.035 G + DEXAMETHASONE SODIUM PHOSPHATE 2.5 MG + 0.9% SODIUM CHLORIDE 3 ML
     Route: 037
     Dates: start: 20200310, end: 20200310
  38. 0.9% SODIUM CHLORIDE INJECTION [Suspect]
     Active Substance: SODIUM CHLORIDE
     Dosage: CHEMOTHERAPY FIRST TO THIRD TIME, CEDESSA + DEXAMETHASONE SODIUM PHOSPHATE + 0.9% SODIUM CHLORIDE
     Route: 037
  39. 0.9% SODIUM CHLORIDE INJECTION [Suspect]
     Active Substance: SODIUM CHLORIDE
     Dosage: CHEMOTHERAPY FOURTH TIME, METHOTREXATE 12.5 MG + DEXAMETHASONE SODIUM PHOSPHATE 2.5 MG + 0.9% SODIUM
     Route: 037
     Dates: start: 20200310, end: 20200310

REACTIONS (1)
  - Bone marrow failure [Recovering/Resolving]

NARRATIVE: CASE EVENT DATE: 20200323
